FAERS Safety Report 8797729 (Version 1)
Quarter: 2012Q4

REPORT INFORMATION
  Report Type: 
  Country: US (occurrence: US)
  Receive Date: 20120920
  Receipt Date: 20120920
  Transmission Date: 20130627
  Serious: No
  Sender: FDA-Public Use
  Company Number: US-009507513-1208USA011186

PATIENT
  Age: 64 Year

DRUGS (4)
  1. JANUVIA [Suspect]
     Indication: TYPE 2 DIABETES MELLITUS
     Dosage: 100 mg, UNK
     Route: 048
     Dates: start: 2011
  2. SIMVASTATIN TABLETS, USP [Concomitant]
  3. ZOLOFT [Concomitant]
  4. THYROID [Concomitant]

REACTIONS (2)
  - Swollen tongue [Recovered/Resolved]
  - Speech disorder [Recovered/Resolved]
